FAERS Safety Report 12624247 (Version 1)
Quarter: 2016Q3

REPORT INFORMATION
  Report Type: Spontaneous
  Country: US (occurrence: US)
  Receive Date: 20160805
  Receipt Date: 20160805
  Transmission Date: 20161109
  Serious: Yes (Hospitalization, Other)
  Sender: FDA-Public Use
  Company Number: US-ROCHE-1802185

PATIENT
  Age: 45 Year
  Sex: Female
  Weight: 65.5 kg

DRUGS (3)
  1. AVASTIN [Suspect]
     Active Substance: BEVACIZUMAB
     Indication: CERVIX CARCINOMA
     Route: 065
     Dates: start: 201508, end: 201512
  2. CISPLATIN. [Suspect]
     Active Substance: CISPLATIN
     Indication: CERVIX CARCINOMA
     Route: 065
     Dates: start: 201508
  3. TAXOL [Suspect]
     Active Substance: PACLITAXEL
     Indication: CERVIX CARCINOMA
     Route: 065
     Dates: start: 201508

REACTIONS (6)
  - Abdominal pain [Unknown]
  - Nausea [Unknown]
  - Haematochezia [Unknown]
  - Large intestine perforation [Recovered/Resolved]
  - Gastroenteritis radiation [Recovered/Resolved]
  - Vomiting [Unknown]

NARRATIVE: CASE EVENT DATE: 201512
